FAERS Safety Report 5753221-X (Version None)
Quarter: 2008Q2

REPORT INFORMATION
  Report Type: 
  Country: None (occurrence: None)
  Receive Date: 20080527
  Receipt Date: 20080515
  Transmission Date: 20081010
  Serious: Yes (Hospitalization)
  Sender: FDA-Public Use
  Company Number: 2008AP001227

PATIENT
  Age: 27 Year
  Sex: Female

DRUGS (4)
  1. CARBAMAZEPINE [Suspect]
     Indication: AGITATION
  2. VALPROATE SODIUM [Suspect]
     Indication: PSYCHOTIC DISORDER
  3. LEVOSULPIRIDE (LEVOSULPIRIDE) [Suspect]
     Indication: AGITATION
  4. LEVOSULPIRIDE (LEVOSULPIRIDE) [Suspect]
     Indication: PSYCHOTIC DISORDER

REACTIONS (9)
  - BRADYCARDIA [None]
  - DIABETIC KETOACIDOSIS [None]
  - ELECTROCARDIOGRAM REPOLARISATION ABNORMALITY [None]
  - GLYCOSURIA [None]
  - HYPERGLYCAEMIA [None]
  - HYPOTHYROIDISM [None]
  - KETOACIDOSIS [None]
  - MYXOEDEMA COMA [None]
  - PERIORBITAL OEDEMA [None]
